FAERS Safety Report 7014166-0 (Version None)
Quarter: 2010Q3

REPORT INFORMATION
  Report Type: 
  Country: None (occurrence: None)
  Receive Date: 20100927
  Receipt Date: 20100913
  Transmission Date: 20110219
  Serious: Yes (Hospitalization)
  Sender: FDA-Public Use
  Company Number: DE-RANBAXY-2010RR-38251

PATIENT
  Age: 48 Year
  Sex: Female

DRUGS (3)
  1. LORAZEPAM [Suspect]
     Indication: DEPRESSION
     Dosage: 1 MG, UNK
     Route: 048
  2. VENLAFAXIN RETARD 75 MG [Concomitant]
     Indication: DEPRESSION
     Dosage: 75 MG, UNK
     Route: 048
  3. PIPAMPERONE 40 MG [Concomitant]
     Indication: DEPRESSION
     Dosage: 80 MG, UNK
     Route: 048

REACTIONS (1)
  - THERAPEUTIC AGENT TOXICITY [None]
